FAERS Safety Report 5818135-5 (Version None)
Quarter: 2008Q3

REPORT INFORMATION
  Report Type: 
  Country: None (occurrence: None)
  Receive Date: 20080722
  Receipt Date: 20071025
  Transmission Date: 20090109
  Serious: No
  Sender: FDA-Public Use
  Company Number: US-BAYER-US-2007-039741

PATIENT
  Age: 42 Year
  Sex: Female
  Weight: 59 kg

DRUGS (1)
  1. MAGNEVIST [Suspect]
     Indication: ACCIDENTAL EXPOSURE
     Route: 061
     Dates: start: 20070501, end: 20070101

REACTIONS (5)
  - BLISTER [None]
  - ERYTHEMA [None]
  - PRURITUS [None]
  - PYREXIA [None]
  - SKIN EXFOLIATION [None]
